FAERS Safety Report 4533832-X (Version None)
Quarter: 2004Q4

REPORT INFORMATION
  Report Type: 
  Country: None (occurrence: None)
  Receive Date: 20041221
  Receipt Date: 20041214
  Transmission Date: 20050328
  Serious: Yes (Life-Threatening, Hospitalization)
  Sender: FDA-Public Use
  Company Number: US-MERCK-0412USA01770

PATIENT
  Age: 70 Year
  Sex: Male

DRUGS (13)
  1. VIOXX [Suspect]
     Indication: BACK PAIN
     Route: 048
     Dates: start: 20030101, end: 20041201
  2. ROSIGLITAZONE MALEATE [Concomitant]
     Route: 065
  3. METOPROLOL [Concomitant]
     Route: 065
  4. SYNTHROID [Concomitant]
     Route: 065
  5. TIAZAC [Concomitant]
     Route: 065
  6. IBUPROFEN [Concomitant]
     Route: 065
  7. PLAVIX [Concomitant]
     Route: 065
  8. METFORMIN [Concomitant]
     Route: 065
  9. ASPIRIN [Concomitant]
     Route: 065
  10. GLYBURIDE [Concomitant]
     Route: 065
  11. ISOSORBIDE [Concomitant]
     Route: 065
  12. TERAZOSIN HYDROCHLORIDE [Concomitant]
     Route: 065
  13. LEVOTHYROXINE SODIUM [Concomitant]
     Route: 065

REACTIONS (1)
  - BLOOD CREATINE PHOSPHOKINASE INCREASED [None]
